FAERS Safety Report 7823839-9 (Version None)
Quarter: 2011Q4

REPORT INFORMATION
  Report Type: 
  Country: None (occurrence: None)
  Receive Date: 20111019
  Receipt Date: 20110725
  Transmission Date: 20120403
  Serious: No
  Sender: FDA-Public Use
  Company Number: US-ASTRAZENECA-2011SE44549

PATIENT
  Sex: Male

DRUGS (5)
  1. SYMBICORT [Suspect]
     Dosage: AEROSOL, 160 MCG/4.5MCG, 2 PUFFS ONCE A DAY
     Route: 055
  2. SYMBICORT [Suspect]
     Dosage: AEROSOL, 160 MCG/4.5MCG, FOUR TIMES A DAY
     Route: 055
  3. SYMBICORT [Suspect]
     Dosage: AEROSOL, 160 MCG/4.5MCG, ONCE A DAY
     Route: 055
  4. SYMBICORT [Suspect]
     Dosage: AEROSOL, 160 MCG/4.5MCG, 2 PUFFS 4 TIMES A DAY
     Route: 055
     Dates: start: 20110224
  5. SYMBICORT [Suspect]
     Dosage: AEROSOL, 160 MCG/4.5MCG, 2 PUFFS EVERY 2 OR 3 DAYS
     Route: 055

REACTIONS (3)
  - DYSPNOEA [None]
  - INCORRECT DOSE ADMINISTERED [None]
  - DRUG DOSE OMISSION [None]
